FAERS Safety Report 19806632 (Version 1)
Quarter: 2021Q3

REPORT INFORMATION
  Report Type: Spontaneous
  Country: US (occurrence: US)
  Receive Date: 20210909
  Receipt Date: 20210909
  Transmission Date: 20211014
  Serious: No
  Sender: FDA-Public Use
  Company Number: US-VISTAPHARM, INC.-VER202107-001739

PATIENT
  Age: 60 Year
  Sex: Female

DRUGS (11)
  1. NP THYROID [Suspect]
     Active Substance: LEVOTHYROXINE\LIOTHYRONINE
     Dosage: 30 MG
     Route: 048
     Dates: start: 2021, end: 202106
  2. NP THYROID [Suspect]
     Active Substance: LEVOTHYROXINE\LIOTHYRONINE
     Indication: HYPOTHYROIDISM
     Dosage: 30 MG
     Route: 048
     Dates: start: 202103
  3. NP THYROID [Suspect]
     Active Substance: LEVOTHYROXINE\LIOTHYRONINE
     Dosage: 30 MG
     Route: 048
     Dates: start: 202104
  4. GABAPENTIN. [Suspect]
     Active Substance: GABAPENTIN
     Indication: PARAESTHESIA
     Dosage: UNKNOWN
  5. LEVOTHYROXINE. [Suspect]
     Active Substance: LEVOTHYROXINE
     Indication: HYPOTHYROIDISM
     Dosage: UNKNOWN
  6. NP THYROID [Suspect]
     Active Substance: LEVOTHYROXINE\LIOTHYRONINE
     Dosage: 30 MG
     Route: 048
     Dates: start: 202104
  7. SYNTHROID [Suspect]
     Active Substance: LEVOTHYROXINE SODIUM
     Indication: HYPOTHYROIDISM
     Dosage: UNKNOWN
  8. LIOTHYRONINE [Suspect]
     Active Substance: LIOTHYRONINE
     Indication: HYPOTHYROIDISM
     Dosage: 5 MCG
     Route: 048
     Dates: start: 202103
  9. LISINOPRIL. [Concomitant]
     Active Substance: LISINOPRIL
     Indication: HYPERTENSION
     Dosage: 20 MG
  10. LEVOTHYROXINE. [Suspect]
     Active Substance: LEVOTHYROXINE
     Dosage: UNKNOWN
  11. ESTRADIOL. [Concomitant]
     Active Substance: ESTRADIOL
     Indication: HYSTERECTOMY
     Dosage: 1 MG

REACTIONS (20)
  - Blood pressure increased [Not Recovered/Not Resolved]
  - Arthritis [Not Recovered/Not Resolved]
  - Palpitations [Not Recovered/Not Resolved]
  - Fatigue [Not Recovered/Not Resolved]
  - Retching [Not Recovered/Not Resolved]
  - Bone pain [Not Recovered/Not Resolved]
  - Emotional disorder [Not Recovered/Not Resolved]
  - Product use in unapproved indication [Unknown]
  - Gait disturbance [Not Recovered/Not Resolved]
  - Abdominal discomfort [Not Recovered/Not Resolved]
  - Somnolence [Not Recovered/Not Resolved]
  - Memory impairment [Not Recovered/Not Resolved]
  - Rash [Recovered/Resolved]
  - Pain in extremity [Not Recovered/Not Resolved]
  - Migraine [Not Recovered/Not Resolved]
  - Feeling cold [Not Recovered/Not Resolved]
  - Anxiety [Not Recovered/Not Resolved]
  - Pain [Not Recovered/Not Resolved]
  - Nausea [Not Recovered/Not Resolved]
  - Feeling abnormal [Not Recovered/Not Resolved]
